FAERS Safety Report 17337220 (Version 1)
Quarter: 2020Q1

REPORT INFORMATION
  Report Type: Spontaneous
  Country: CA (occurrence: CA)
  Receive Date: 20200129
  Receipt Date: 20200129
  Transmission Date: 20200409
  Serious: Yes (Other)
  Sender: FDA-Public Use
  Company Number: CA-AUROBINDO-AUR-APL-2020-004097

PATIENT
  Age: 54 Year
  Sex: Male

DRUGS (10)
  1. ERGOCALCIFEROL. [Concomitant]
     Active Substance: ERGOCALCIFEROL
     Indication: PRODUCT USED FOR UNKNOWN INDICATION
     Dosage: UNK
     Route: 065
  2. METFORMIN [Suspect]
     Active Substance: METFORMIN HYDROCHLORIDE
     Indication: TYPE 2 DIABETES MELLITUS
     Dosage: 750 MILLIGRAM, TWO TIMES A DAY
     Route: 065
  3. ANDROGEL [Concomitant]
     Active Substance: TESTOSTERONE
     Indication: PRODUCT USED FOR UNKNOWN INDICATION
     Dosage: UNK
     Route: 065
  4. METFORMIN [Suspect]
     Active Substance: METFORMIN HYDROCHLORIDE
     Dosage: 500 MILLIGRAM, TWO TIMES A DAY
     Route: 065
  5. SANDOSTATIN [Suspect]
     Active Substance: OCTREOTIDE ACETATE
     Dosage: 50 MICROGRAM, 3 TIMES A DAY
     Route: 058
  6. DOSTINEX [Concomitant]
     Active Substance: CABERGOLINE
     Indication: PRODUCT USED FOR UNKNOWN INDICATION
     Dosage: UNK
     Route: 065
  7. LORAZEPAM. [Concomitant]
     Active Substance: LORAZEPAM
     Indication: PRODUCT USED FOR UNKNOWN INDICATION
     Dosage: UNK
     Route: 065
  8. SANDOSTATIN [Suspect]
     Active Substance: OCTREOTIDE ACETATE
     Dosage: 20 MILLIGRAM, EVERY MONTH
     Route: 030
  9. SANDOSTATIN [Suspect]
     Active Substance: OCTREOTIDE ACETATE
     Indication: ACROMEGALY
     Dosage: 20 MILLIGRAM, EVERY MONTH
     Route: 030
  10. SANDOSTATIN [Suspect]
     Active Substance: OCTREOTIDE ACETATE
     Dosage: UNK
     Route: 030

REACTIONS (17)
  - Asthenia [Unknown]
  - Acne [Unknown]
  - Blood pressure increased [Unknown]
  - Limb injury [Unknown]
  - Type 2 diabetes mellitus [Unknown]
  - Fatigue [Unknown]
  - Hypoglycaemia [Unknown]
  - Diarrhoea [Unknown]
  - Pain in extremity [Unknown]
  - Sputum discoloured [Unknown]
  - Injection site pain [Unknown]
  - Needle issue [Unknown]
  - Cough [Unknown]
  - Blood glucose fluctuation [Unknown]
  - Stress [Unknown]
  - Heart rate decreased [Unknown]
  - Periostitis [Unknown]
